FAERS Safety Report 11272994 (Version 1)
Quarter: 2015Q2

REPORT INFORMATION
  Report Type: Spontaneous
  Country: US (occurrence: None)
  Receive Date: 20150625
  Receipt Date: 20150625
  Transmission Date: 20150821
  Serious: No
  Sender: FDA-Public Use
  Company Number: A-NJ2015-114701

PATIENT
  Age: 31 Year
  Sex: Male

DRUGS (1)
  1. OPSUMIT [Suspect]
     Active Substance: MACITENTAN
     Indication: PRODUCT USED FOR UNKNOWN INDICATION
     Route: 048
     Dates: start: 20150225

REACTIONS (3)
  - Dyspnoea [None]
  - Cardiac disorder [None]
  - Drug ineffective [None]

NARRATIVE: CASE EVENT DATE: 201502
